FAERS Safety Report 5959890-3 (Version None)
Quarter: 2008Q4

REPORT INFORMATION
  Report Type: 
  Country: None (occurrence: None)
  Receive Date: 20081110
  Receipt Date: 20080826
  Transmission Date: 20090506
  Serious: No
  Sender: FDA-Public Use
  Company Number: 2008US002141

PATIENT
  Age: 85 Year
  Sex: Female

DRUGS (4)
  1. LEXISCAN [Suspect]
     Indication: SCAN MYOCARDIAL PERFUSION
     Dosage: 5 ML, PARENTERAL
     Route: 051
     Dates: start: 20080811, end: 20080811
  2. NADOLOL [Concomitant]
  3. ZETIA [Concomitant]
  4. ASPIRIN (CITRIC ACID) [Concomitant]

REACTIONS (2)
  - MYALGIA [None]
  - NAUSEA [None]
